FAERS Safety Report 9679501 (Version 1)
Quarter: 2013Q4

REPORT INFORMATION
  Report Type: Spontaneous
  Country: US (occurrence: US)
  Receive Date: 20131109
  Receipt Date: 20131109
  Transmission Date: 20140711
  Serious: No
  Sender: FDA-Public Use
  Company Number: US-SANOFI-AVENTIS-2013SA060491

PATIENT
  Sex: Female

DRUGS (2)
  1. ALLEGRA-D [Suspect]
     Indication: HYPERSENSITIVITY
     Route: 048
     Dates: start: 20130607
  2. PAXIL [Concomitant]

REACTIONS (2)
  - Off label use [Unknown]
  - Drug ineffective [Unknown]
